FAERS Safety Report 5179332-8 (Version None)
Quarter: 2006Q4

REPORT INFORMATION
  Report Type: 
  Country: None (occurrence: None)
  Receive Date: 20061219
  Receipt Date: 20061215
  Transmission Date: 20070319
  Serious: Yes (Hospitalization)
  Sender: FDA-Public Use
  Company Number: US-GLAXOSMITHKLINE-A0631983A

PATIENT
  Age: 66 Year
  Sex: Male
  Weight: 68.2 kg

DRUGS (2)
  1. TOPOTECAN [Suspect]
     Indication: SMALL CELL LUNG CANCER METASTATIC
     Dosage: 3MGM2 CYCLIC
     Route: 042
     Dates: start: 20061214
  2. BORTEZOMIB [Suspect]
     Indication: SMALL CELL LUNG CANCER METASTATIC
     Dosage: 1.3MGM2 CYCLIC
     Route: 042
     Dates: start: 20061214

REACTIONS (6)
  - DYSPNOEA [None]
  - HEART RATE INCREASED [None]
  - LYMPHADENOPATHY [None]
  - PLEURAL EFFUSION [None]
  - PULMONARY MASS [None]
  - TACHYPNOEA [None]
